FAERS Safety Report 8763310 (Version 2)
Quarter: 2012Q4

REPORT INFORMATION
  Report Type: 
  Country: US (occurrence: US)
  Receive Date: 20120830
  Receipt Date: 20121012
  Transmission Date: 20130627
  Serious: No
  Sender: FDA-Public Use
  Company Number: US-PFIZER INC-2012213913

PATIENT
  Age: 45 Year
  Sex: Female
  Weight: 109 kg

DRUGS (9)
  1. EFFEXOR XR [Suspect]
     Indication: DEPRESSION
     Dosage: 150 mg, daily
     Dates: start: 2009, end: 201207
  2. EFFEXOR XR [Suspect]
     Dosage: UNK
     Dates: start: 2012, end: 20120829
  3. HYDROCHLOROTHIAZIDE [Concomitant]
     Indication: HYPERTENSION
     Dosage: 25 mg, daily
  4. LISINOPRIL [Concomitant]
     Indication: HYPERTENSION
     Dosage: 10 mg, 3x/day
  5. CARVEDILOL [Concomitant]
     Indication: HYPERTENSION
     Dosage: 6.25 mg, 2x/day
  6. ACETYLSALICYLIC ACID [Concomitant]
     Indication: HYPERTENSION
     Dosage: 81 mg, daily
  7. SIMVASTATIN [Concomitant]
     Indication: BLOOD CHOLESTEROL INCREASED
     Dosage: 20 mg, daily
  8. CYCLOBENZAPRINE [Concomitant]
     Indication: BACK DISORDER
     Dosage: 10 mg, daily
  9. CLONAZEPAM [Concomitant]
     Indication: ANXIETY
     Dosage: 0.5 mg, daily

REACTIONS (4)
  - Withdrawal syndrome [Recovered/Resolved]
  - Nervousness [Recovered/Resolved]
  - Nausea [Recovered/Resolved]
  - Feeling abnormal [Recovered/Resolved]
